FAERS Safety Report 8898188 (Version 1)
Quarter: 2012Q4

REPORT INFORMATION
  Report Type: 
  Country: US (occurrence: US)
  Receive Date: 20121108
  Receipt Date: 20121108
  Transmission Date: 20130627
  Serious: No
  Sender: FDA-Public Use
  Company Number: US-AMGEN-USASP2012030133

PATIENT
  Sex: Female

DRUGS (7)
  1. ENBREL [Suspect]
     Indication: PRODUCT USED FOR UNKNOWN INDICATION
     Dosage: 50 mg, qwk
     Route: 058
  2. OMEPRAZOLE [Concomitant]
     Dosage: 40 mg, UNK
  3. POTASSIUM [Concomitant]
     Dosage: 75 mg, UNK
  4. SYNTHROID [Concomitant]
     Dosage: 88 mug, UNK
  5. SINGULAIR [Concomitant]
     Dosage: 10 mg, UNK
  6. FLOVENT [Concomitant]
     Dosage: 110 mug, UNK
  7. SPIRONOLACTON [Concomitant]
     Dosage: 25 mg, UNK

REACTIONS (1)
  - Contusion [Unknown]
